FAERS Safety Report 4458973-7 (Version None)
Quarter: 2004Q3

REPORT INFORMATION
  Report Type: 
  Country: None (occurrence: None)
  Receive Date: 20040923
  Receipt Date: 20040923
  Transmission Date: 20050211
  Serious: Yes (Death)
  Sender: FDA-Public Use
  Company Number: None

PATIENT
  Sex: Male

DRUGS (3)
  1. OXALIPLATIN [Suspect]
  2. AVASTIN [Suspect]
  3. XELODA [Suspect]

REACTIONS (2)
  - GASTROINTESTINAL PERFORATION [None]
  - SEPSIS [None]
